FAERS Safety Report 20743572 (Version 1)
Quarter: 2022Q2

REPORT INFORMATION
  Report Type: Report from Study
  Country: TW (occurrence: TW)
  Receive Date: 20220425
  Receipt Date: 20220425
  Transmission Date: 20220720
  Serious: Yes (Hospitalization)
  Sender: FDA-Public Use
  Company Number: TW-ABBVIE-22K-153-4367704-00

PATIENT
  Age: 35 Year
  Sex: Female
  Weight: 65 kg

DRUGS (1)
  1. HUMIRA [Suspect]
     Active Substance: ADALIMUMAB
     Indication: Hidradenitis
     Route: 058
     Dates: start: 20220128, end: 20220311

REACTIONS (5)
  - Acute pulmonary oedema [Recovering/Resolving]
  - Cardiac failure [Recovering/Resolving]
  - Abdominal distension [Unknown]
  - Oedema peripheral [Unknown]
  - Discomfort [Not Recovered/Not Resolved]

NARRATIVE: CASE EVENT DATE: 20220301
